FAERS Safety Report 6956737-3 (Version None)
Quarter: 2010Q3

REPORT INFORMATION
  Report Type: 
  Country: None (occurrence: None)
  Receive Date: 20100830
  Receipt Date: 20100818
  Transmission Date: 20110219
  Serious: Yes (Hospitalization)
  Sender: FDA-Public Use
  Company Number: PHHY2010US38230

PATIENT
  Sex: Female

DRUGS (9)
  1. EXJADE [Suspect]
     Indication: SICKLE CELL ANAEMIA
     Dosage: 1000 MG, QD
     Route: 048
  2. EXJADE [Suspect]
     Dosage: 500 MG, BID
     Dates: start: 20090413
  3. FOLIC ACID [Concomitant]
     Indication: IRON OVERLOAD
     Dosage: 500 MG, BID
     Dates: start: 20090413
  4. XOPENEX [Concomitant]
     Dosage: UNK
     Dates: start: 20100124
  5. AMBIEN [Concomitant]
     Dosage: UNK
  6. MS CONTIN [Concomitant]
     Dosage: 60 MG, BID
     Dates: start: 20100124
  7. COUMADIN [Concomitant]
     Dosage: 10 MG, UNK
     Dates: start: 20100710
  8. FLEXERIL [Concomitant]
     Dosage: 10 MG, DAILY
     Dates: start: 20100124
  9. DILCARDIA [Concomitant]
     Dosage: 4 MG, UNK
     Dates: start: 20100124

REACTIONS (4)
  - ASTHMA [None]
  - DYSPNOEA [None]
  - PNEUMONIA [None]
  - SICKLE CELL ANAEMIA WITH CRISIS [None]
